FAERS Safety Report 18286609 (Version 1)
Quarter: 2020Q3

REPORT INFORMATION
  Report Type: Report from Study
  Country: US (occurrence: US)
  Receive Date: 20200921
  Receipt Date: 20200921
  Transmission Date: 20201103
  Serious: Yes (Disabling, Other)
  Sender: FDA-Public Use
  Company Number: US-BRISTOL-MYERS SQUIBB COMPANY-BMS-2020-074358

PATIENT
  Sex: Female
  Weight: 51.71 kg

DRUGS (2)
  1. NIVOLUMAB [Suspect]
     Active Substance: NIVOLUMAB
     Indication: SMALL CELL LUNG CANCER
     Dosage: UNK, Q2WK
     Route: 042
  2. HYDROCODONE/ACETAMINOPHEN [Concomitant]
     Active Substance: ACETAMINOPHEN\HYDROCODONE
     Indication: PRODUCT USED FOR UNKNOWN INDICATION
     Dosage: 5?325 MILLIGRAM
     Route: 065

REACTIONS (13)
  - Arthralgia [Unknown]
  - Back pain [Unknown]
  - Weight decreased [Unknown]
  - Myalgia [Unknown]
  - Rash macular [Unknown]
  - Alopecia [Unknown]
  - Pain in extremity [Unknown]
  - Vulvovaginal burning sensation [Unknown]
  - Nausea [Unknown]
  - Fatigue [Unknown]
  - Muscular weakness [Unknown]
  - Disability [Unknown]
  - Decreased appetite [Unknown]
